FAERS Safety Report 7958431-9 (Version None)
Quarter: 2011Q4

REPORT INFORMATION
  Report Type: 
  Country: None (occurrence: None)
  Receive Date: 20111205
  Receipt Date: 20111126
  Transmission Date: 20120403
  Serious: Yes (Hospitalization, Other)
  Sender: FDA-Public Use
  Company Number: US-SANOFI-AVENTIS-2011SA078504

PATIENT
  Age: 69 Year
  Sex: Male

DRUGS (17)
  1. TENORMIN [Concomitant]
  2. MULTI-VITAMINS [Concomitant]
  3. REPAGLINIDE [Concomitant]
  4. LANTUS [Suspect]
     Dosage: DOSE:80 UNIT(S)
     Route: 058
     Dates: start: 20090101
  5. FUROSEMIDE [Concomitant]
  6. HYDRALAZINE HCL [Concomitant]
  7. FERROUS SULFATE TAB [Concomitant]
  8. LIPITOR [Concomitant]
  9. OMEPRAZOLE [Concomitant]
  10. VITAMIN D [Concomitant]
  11. SOLOSTAR [Suspect]
     Dates: start: 20090101
  12. IMDUR [Concomitant]
  13. DOCUSATE SODIUM [Concomitant]
  14. AMITRIPTYLINE HCL [Concomitant]
  15. HUMALOG [Concomitant]
  16. ASPIRIN [Concomitant]
  17. AMLODIPINE [Concomitant]

REACTIONS (2)
  - TESTICULAR SWELLING [None]
  - RENAL FAILURE [None]
